FAERS Safety Report 25712109 (Version 2)
Quarter: 2025Q3

REPORT INFORMATION
  Report Type: Spontaneous
  Country: AU (occurrence: AU)
  Receive Date: 20250821
  Receipt Date: 20250914
  Transmission Date: 20251020
  Serious: Yes (Hospitalization)
  Sender: AMGEN
  Company Number: AU-AMGEN-AUSSP2025162171

PATIENT
  Age: 85 Year
  Sex: Male

DRUGS (12)
  1. ARANESP [Suspect]
     Active Substance: DARBEPOETIN ALFA
     Indication: Plasma cell myeloma
     Dosage: 150 MICROGRAM/0.3 MILLILITRE, 2 TIMES/WK
     Route: 058
     Dates: start: 202403
  2. ARANESP [Suspect]
     Active Substance: DARBEPOETIN ALFA
     Dosage: 150 MICROGRAM/0.3 MILLILITRE, 2 TIMES/WK
     Route: 058
  3. ARANESP [Suspect]
     Active Substance: DARBEPOETIN ALFA
     Dosage: 150 MICROGRAM/0.3 MILLILITRE, 2 TIMES/WK
     Route: 058
  4. ARANESP [Suspect]
     Active Substance: DARBEPOETIN ALFA
     Dosage: 150 MICROGRAM/0.3 MILLILITRE, 2 TIMES/WK
     Route: 058
  5. ATORVASTATIN [Concomitant]
     Active Substance: ATORVASTATIN
     Route: 065
  6. Panamax [Concomitant]
     Route: 065
  7. XARELTO [Concomitant]
     Active Substance: RIVAROXABAN
     Route: 065
  8. EZETIMIBE [Concomitant]
     Active Substance: EZETIMIBE
     Route: 065
  9. RAMIPRIL [Concomitant]
     Active Substance: RAMIPRIL
     Route: 065
  10. PANTOPRAZOLE [Concomitant]
     Active Substance: PANTOPRAZOLE
     Route: 065
  11. SPIRONOLACTONE [Concomitant]
     Active Substance: SPIRONOLACTONE
     Route: 065
  12. MOMELOTINIB [Concomitant]
     Active Substance: MOMELOTINIB
     Route: 065

REACTIONS (3)
  - Cardiac disorder [Unknown]
  - Device difficult to use [Unknown]
  - Off label use [Unknown]

NARRATIVE: CASE EVENT DATE: 20240301
